FAERS Safety Report 22630305 (Version 1)
Quarter: 2023Q2

REPORT INFORMATION
  Report Type: Report from Study
  Country: US (occurrence: None)
  Receive Date: 20230622
  Receipt Date: 20230622
  Transmission Date: 20230722
  Serious: Yes (Death)
  Sender: FDA-Public Use
  Company Number: 2023A142677

PATIENT
  Age: 11393 Day
  Sex: Female

DRUGS (1)
  1. LYNPARZA [Suspect]
     Active Substance: OLAPARIB
     Indication: Genital neoplasm malignant female
     Route: 048
     Dates: start: 202304

REACTIONS (1)
  - Death [Fatal]

NARRATIVE: CASE EVENT DATE: 20230620
